FAERS Safety Report 5954365-X (Version None)
Quarter: 2008Q4

REPORT INFORMATION
  Report Type: 
  Country: None (occurrence: None)
  Receive Date: 20081112
  Receipt Date: 20081028
  Transmission Date: 20090506
  Serious: Yes (Other)
  Sender: FDA-Public Use
  Company Number: 2008S1019500

PATIENT
  Age: 28 Year
  Sex: Female

DRUGS (3)
  1. SERTRALINE [Suspect]
     Indication: DEPRESSION
     Dosage: 50 MG; DAILY; ORAL
     Route: 048
     Dates: start: 20080909, end: 20081030
  2. CITALOPRAM HYDROBROMIDE [Concomitant]
  3. FLUOXETINE [Concomitant]

REACTIONS (6)
  - ASTHMA [None]
  - CONDITION AGGRAVATED [None]
  - HYPERSENSITIVITY [None]
  - JOINT SWELLING [None]
  - RASH [None]
  - URTICARIA [None]
